FAERS Safety Report 14530900 (Version 2)
Quarter: 2018Q2

REPORT INFORMATION
  Report Type: Spontaneous
  Country: PT (occurrence: PT)
  Receive Date: 20180214
  Receipt Date: 20180504
  Transmission Date: 20180711
  Serious: Yes (Hospitalization, Other)
  Sender: FDA-Public Use
  Company Number: PT-GLAXOSMITHKLINE-PT2018GSK023395

PATIENT
  Age: 58 Year
  Sex: Male

DRUGS (1)
  1. FLUTICASONE PROPIONATE+SALMETEROL XINAFOATE [Suspect]
     Active Substance: FLUTICASONE PROPIONATE\SALMETEROL XINAFOATE
     Indication: ASTHMA
     Dosage: UNK

REACTIONS (9)
  - Epistaxis [Unknown]
  - Rhinorrhoea [Unknown]
  - Hyposmia [Unknown]
  - Haemophilus infection [Unknown]
  - Asthma [Unknown]
  - Staphylococcal infection [Unknown]
  - Eosinophilic granulomatosis with polyangiitis [Unknown]
  - Aspergillus infection [Unknown]
  - Nasal obstruction [Unknown]
